FAERS Safety Report 14645318 (Version 3)
Quarter: 2018Q2

REPORT INFORMATION
  Report Type: Spontaneous
  Country: US (occurrence: US)
  Receive Date: 20180315
  Receipt Date: 20180428
  Transmission Date: 20180711
  Serious: No
  Sender: FDA-Public Use
  Company Number: US-JNJFOC-20180302495

PATIENT
  Age: 49 Year
  Sex: Male

DRUGS (1)
  1. INVEGA SUSTENNA [Suspect]
     Active Substance: PALIPERIDONE PALMITATE
     Indication: SCHIZOPHRENIA
     Dosage: LEFT DELTOID MUSCLE
     Route: 030
     Dates: start: 20180201

REACTIONS (1)
  - Injection site nodule [Recovered/Resolved]

NARRATIVE: CASE EVENT DATE: 20180201
